FAERS Safety Report 19022010 (Version 1)
Quarter: 2021Q1

REPORT INFORMATION
  Report Type: Spontaneous
  Country: US (occurrence: US)
  Receive Date: 20210317
  Receipt Date: 20210317
  Transmission Date: 20210420
  Serious: No
  Sender: FDA-Public Use
  Company Number: US-ABBVIE-20K-163-3584868-00

PATIENT
  Sex: Female

DRUGS (2)
  1. RINVOQ [Suspect]
     Active Substance: UPADACITINIB
     Indication: RHEUMATOID ARTHRITIS
     Route: 048
     Dates: end: 202003
  2. RINVOQ [Suspect]
     Active Substance: UPADACITINIB
     Route: 048
     Dates: start: 2020

REACTIONS (3)
  - Gait inability [Not Recovered/Not Resolved]
  - Skin ulcer [Recovering/Resolving]
  - Arthropathy [Not Recovered/Not Resolved]

NARRATIVE: CASE EVENT DATE: 2020
